FAERS Safety Report 16709973 (Version 1)
Quarter: 2019Q3

REPORT INFORMATION
  Report Type: Spontaneous
  Country: US (occurrence: US)
  Receive Date: 20190816
  Receipt Date: 20190816
  Transmission Date: 20191004
  Serious: No
  Sender: FDA-Public Use
  Company Number: US-PFIZER INC-2019349151

PATIENT
  Age: 54 Year
  Sex: Female

DRUGS (3)
  1. TRAZODONE [Concomitant]
     Active Substance: TRAZODONE HYDROCHLORIDE
     Dosage: UNK
  2. LYRICA CR [Suspect]
     Active Substance: PREGABALIN
     Indication: BONE DISORDER
     Dosage: 330 MG, DAILY
     Route: 048
     Dates: start: 20190808
  3. CELECOXIB. [Concomitant]
     Active Substance: CELECOXIB
     Dosage: UNK

REACTIONS (13)
  - Off label use [Unknown]
  - Dyspepsia [Unknown]
  - Pain [Unknown]
  - Nerve injury [Unknown]
  - Cardiac disorder [Unknown]
  - Anxiety [Unknown]
  - Vision blurred [Unknown]
  - Feeling abnormal [Unknown]
  - Palpitations [Unknown]
  - Energy increased [Unknown]
  - Tremor [Unknown]
  - Dry mouth [Unknown]
  - Drug ineffective for unapproved indication [Unknown]
